FAERS Safety Report 17078432 (Version 3)
Quarter: 2020Q1

REPORT INFORMATION
  Report Type: Spontaneous
  Country: US (occurrence: US)
  Receive Date: 20191126
  Receipt Date: 20200110
  Transmission Date: 20200409
  Serious: Yes (Life-Threatening, Disabling)
  Sender: FDA-Public Use
  Company Number: NVSC2019US044988

PATIENT
  Age: 72 Year
  Sex: Female
  Weight: 56.69 kg

DRUGS (2)
  1. ILARIS [Suspect]
     Active Substance: CANAKINUMAB
     Dosage: UNK
     Route: 030
     Dates: start: 20191231
  2. ILARIS [Suspect]
     Active Substance: CANAKINUMAB
     Indication: CRYOPYRIN ASSOCIATED PERIODIC SYNDROME
     Dosage: 150 MG, EVERY 8 WEEKS
     Route: 058
     Dates: start: 20191103, end: 20191229

REACTIONS (6)
  - Burning sensation [Recovered/Resolved]
  - Feeling abnormal [Recovered/Resolved]
  - Dysgeusia [Recovered/Resolved]
  - Insomnia [Recovered/Resolved]
  - Incorrect route of product administration [Recovered/Resolved]
  - Constipation [Recovered/Resolved]

NARRATIVE: CASE EVENT DATE: 20191103
